FAERS Safety Report 7583448-6 (Version None)
Quarter: 2011Q2

REPORT INFORMATION
  Report Type: 
  Country: None (occurrence: None)
  Receive Date: 20110630
  Receipt Date: 20110620
  Transmission Date: 20111010
  Serious: Yes (Hospitalization, Other)
  Sender: FDA-Public Use
  Company Number: CA-ABBOTT-11P-028-0727134-01

PATIENT
  Sex: Female
  Weight: 73.5 kg

DRUGS (13)
  1. HUMIRA [Suspect]
     Dates: start: 20110206, end: 20110403
  2. PREDNISONE [Concomitant]
     Indication: CROHN'S DISEASE
     Dates: start: 20110221, end: 20110227
  3. AZATHIOPRINE [Concomitant]
     Indication: CROHN'S DISEASE
     Dates: start: 20091022, end: 20110411
  4. ATIVAN [Concomitant]
     Indication: ANXIETY
     Dates: start: 20091116
  5. PREDNISONE [Concomitant]
     Dates: start: 20110228, end: 20110306
  6. HUMIRA [Suspect]
     Indication: CROHN'S DISEASE
     Dosage: ONCE
     Route: 058
     Dates: start: 20090918, end: 20090918
  7. HUMIRA [Suspect]
     Route: 058
     Dates: start: 20110518
  8. ROBAXACET [Concomitant]
     Indication: ARTHRALGIA
     Dates: start: 20090101
  9. HUMIRA [Suspect]
     Route: 058
     Dates: start: 20091028
  10. PREDNISONE [Concomitant]
     Dates: start: 20110307, end: 20110313
  11. HUMIRA [Suspect]
     Dates: start: 20110404, end: 20110517
  12. WELLBUTRIN [Concomitant]
     Indication: DEPRESSION
     Dates: start: 20080401
  13. ADVIL LIQUI-GELS [Concomitant]
     Indication: ARTHRALGIA
     Dates: start: 20090101

REACTIONS (2)
  - LARGE INTESTINAL STRICTURE [None]
  - CARCINOID TUMOUR OF THE APPENDIX [None]
